FAERS Safety Report 5595925-8 (Version None)
Quarter: 2008Q1

REPORT INFORMATION
  Report Type: 
  Country: None (occurrence: None)
  Receive Date: 20080118
  Receipt Date: 20080111
  Transmission Date: 20080703
  Serious: Yes (Other)
  Sender: FDA-Public Use
  Company Number: CA-ASTRAZENECA-2008UW01066

PATIENT
  Age: 65 Year
  Sex: Male

DRUGS (1)
  1. CRESTOR [Suspect]
     Indication: BLOOD CHOLESTEROL INCREASED
     Route: 048
     Dates: start: 20071221

REACTIONS (7)
  - ASTHENIA [None]
  - CONSTIPATION [None]
  - FAECES DISCOLOURED [None]
  - HYPERHIDROSIS [None]
  - MYALGIA [None]
  - SYNCOPE [None]
  - YELLOW SKIN [None]
